FAERS Safety Report 8890875 (Version 2)
Quarter: 2012Q4

REPORT INFORMATION
  Report Type: 
  Country: FR (occurrence: FR)
  Receive Date: 20121106
  Receipt Date: 20121207
  Transmission Date: 20130627
  Serious: Yes (Hospitalization)
  Sender: FDA-Public Use
  Company Number: FR-VERTEX PHARMACEUTICAL INC.-2012-024110

PATIENT
  Age: 49 Year
  Sex: Male
  Weight: 84 kg

DRUGS (10)
  1. INCIVO [Suspect]
     Indication: HEPATITIS C
     Dosage: Dosage Form: Tablet
     Route: 065
     Dates: start: 20120319, end: 20120611
  2. PEGASYS [Suspect]
     Indication: HEPATITIS C
     Dosage: Dosage Form: Unspecified
     Route: 065
     Dates: start: 20120319, end: 20121001
  3. COPEGUS [Concomitant]
     Indication: PRODUCT USED FOR UNKNOWN INDICATION
     Dosage: Dosage Form: Unspecified
     Route: 065
     Dates: start: 20120319, end: 20121001
  4. ATARAX [Concomitant]
     Indication: PRODUCT USED FOR UNKNOWN INDICATION
     Dosage: Dosage Form: Unspecified
     Route: 065
  5. STAGID [Concomitant]
     Indication: PRODUCT USED FOR UNKNOWN INDICATION
     Dosage: 1 DF, bid
  6. STAGID [Concomitant]
     Dosage: Dosage Form: Unspecified
     Route: 065
  7. JANUVIA [Concomitant]
     Indication: PRODUCT USED FOR UNKNOWN INDICATION
  8. JANUVIA [Concomitant]
     Dosage: Dosage Form: Unspecified
     Route: 065
  9. IXPRIM [Concomitant]
  10. NEORECORMON [Concomitant]

REACTIONS (11)
  - Systemic lupus erythematosus [Unknown]
  - Arthralgia [Unknown]
  - Myalgia [Unknown]
  - Decreased appetite [Unknown]
  - Depression [Unknown]
  - Suicidal ideation [Unknown]
  - Glomerulonephropathy [Unknown]
  - Pulmonary tuberculosis [Unknown]
  - Leukopenia [Unknown]
  - Neutropenia [Unknown]
  - Thrombocytopenia [Unknown]
